FAERS Safety Report 13940267 (Version 3)
Quarter: 2017Q3

REPORT INFORMATION
  Report Type: Spontaneous
  Country: US (occurrence: US)
  Receive Date: 20170906
  Receipt Date: 20170927
  Transmission Date: 20171127
  Serious: Yes (Hospitalization, Other)
  Sender: FDA-Public Use
  Company Number: US-SAOL THERAPEUTICS-2017SAO01397

PATIENT
  Age: 38 Year
  Sex: Female

DRUGS (6)
  1. LIORESAL [Suspect]
     Active Substance: BACLOFEN
     Dosage: 50.03 ?G, \DAY
     Route: 037
     Dates: start: 20170905
  2. LIORESAL [Suspect]
     Active Substance: BACLOFEN
     Indication: MULTIPLE SCLEROSIS
     Dosage: 341.62 ?G, \DAY
     Route: 037
     Dates: start: 20170629, end: 2017
  3. OXYBUTYNIN CHLORIDE ER [Concomitant]
     Active Substance: OXYBUTYNIN CHLORIDE
     Dosage: UNK
     Route: 048
     Dates: start: 20160518
  4. BACLOFEN. [Suspect]
     Active Substance: BACLOFEN
  5. LIORESAL [Suspect]
     Active Substance: BACLOFEN
     Indication: MUSCLE SPASTICITY
     Dosage: UNK ?G, \DAY
     Route: 037
     Dates: start: 201705
  6. MIRENA [Concomitant]
     Active Substance: LEVONORGESTREL
     Dosage: UNK
     Route: 015
     Dates: start: 20160105

REACTIONS (9)
  - Frustration tolerance decreased [Unknown]
  - Pain [Unknown]
  - Small intestinal obstruction [Recovered/Resolved]
  - Cholelithiasis [Unknown]
  - Gastroenteritis viral [Recovered/Resolved]
  - Drug dose omission [Recovered/Resolved]
  - Ascites [Unknown]
  - Drug ineffective for unapproved indication [Unknown]
  - Ileus [Recovered/Resolved]

NARRATIVE: CASE EVENT DATE: 201708
